FAERS Safety Report 12476346 (Version 1)
Quarter: 2016Q2

REPORT INFORMATION
  Report Type: Spontaneous
  Country: DE (occurrence: DE)
  Receive Date: 20160617
  Receipt Date: 20160617
  Transmission Date: 20160815
  Serious: Yes (Other)
  Sender: FDA-Public Use
  Company Number: DE-INCYTE CORPORATION-2016IN003418

PATIENT
  Age: 69 Year
  Sex: Female

DRUGS (3)
  1. JAKAFI [Suspect]
     Active Substance: RUXOLITINIB
     Indication: PRIMARY MYELOFIBROSIS
     Dosage: 2 X 20 MG/D FOR APPROXIMATELY 1 YEAR
     Route: 065
  2. JAKAFI [Suspect]
     Active Substance: RUXOLITINIB
     Dosage: 2 X 20 MG/D
     Route: 065
  3. JAKAFI [Suspect]
     Active Substance: RUXOLITINIB
     Dosage: 2 X 10 MG/D
     Route: 065

REACTIONS (3)
  - Chronic cutaneous lupus erythematosus [Recovered/Resolved]
  - Thrombocytopenia [Unknown]
  - Therapeutic response unexpected [Unknown]
